FAERS Safety Report 22201568 (Version 1)
Quarter: 2023Q2

REPORT INFORMATION
  Report Type: Spontaneous
  Country: US (occurrence: US)
  Receive Date: 20230412
  Receipt Date: 20230412
  Transmission Date: 20230722
  Serious: Yes (Other)
  Sender: FDA-Public Use
  Company Number: US-AMRING PHARMACEUTICALS INC.-2023US001307

PATIENT

DRUGS (2)
  1. ARSENIC TRIOXIDE [Suspect]
     Active Substance: ARSENIC TRIOXIDE
     Indication: Acute promyelocytic leukaemia
     Dosage: UNK
     Route: 065
  2. TRETINOIN [Suspect]
     Active Substance: TRETINOIN
     Indication: Acute promyelocytic leukaemia
     Dosage: UNK
     Route: 065

REACTIONS (5)
  - Respiratory failure [Unknown]
  - Pericarditis [Recovered/Resolved]
  - Differentiation syndrome [Recovered/Resolved]
  - Pericardial effusion [Recovered/Resolved]
  - Pleuritic pain [Unknown]
